FAERS Safety Report 14826981 (Version 1)
Quarter: 2018Q2

REPORT INFORMATION
  Report Type: Spontaneous
  Country: FR (occurrence: FR)
  Receive Date: 20180430
  Receipt Date: 20180430
  Transmission Date: 20180711
  Serious: Yes (Hospitalization)
  Sender: FDA-Public Use
  Company Number: FR-AUROBINDO-AUR-APL-2018-022461

PATIENT
  Age: 55 Year
  Sex: Male

DRUGS (5)
  1. CANCIDAS [Suspect]
     Active Substance: CASPOFUNGIN ACETATE
     Indication: POST PROCEDURAL SEPSIS
     Route: 042
     Dates: start: 20180117, end: 20180122
  2. MEROPENEM. [Suspect]
     Active Substance: MEROPENEM
     Indication: POST PROCEDURAL SEPSIS
     Route: 042
     Dates: start: 20180117, end: 20180122
  3. AMIKACINE                          /00391001/ [Suspect]
     Active Substance: AMIKACIN
     Indication: POST PROCEDURAL SEPSIS
     Dosage: INCONNUE
     Route: 065
     Dates: start: 20180115, end: 20180117
  4. TAZOCILLINE [Suspect]
     Active Substance: PIPERACILLIN SODIUM\TAZOBACTAM SODIUM
     Indication: POST PROCEDURAL SEPSIS
     Route: 042
     Dates: start: 20180115, end: 20180116
  5. VANCOMYCINE                        /00314401/ [Suspect]
     Active Substance: VANCOMYCIN
     Indication: POST PROCEDURAL SEPSIS
     Route: 065
     Dates: start: 20180116, end: 20180117

REACTIONS (2)
  - Haematuria [Recovered/Resolved]
  - Blood creatinine increased [Recovered/Resolved]

NARRATIVE: CASE EVENT DATE: 20180117
